FAERS Safety Report 17760468 (Version 1)
Quarter: 2020Q2

REPORT INFORMATION
  Report Type: Report from Study
  Country: BR (occurrence: BR)
  Receive Date: 20200508
  Receipt Date: 20200508
  Transmission Date: 20200714
  Serious: Yes (Death)
  Sender: FDA-Public Use
  Company Number: NVSC2020BR125242

PATIENT
  Age: 99 Year
  Sex: Female

DRUGS (2)
  1. AZOPT [Suspect]
     Active Substance: BRINZOLAMIDE
     Indication: PRODUCT USED FOR UNKNOWN INDICATION
     Dosage: UNK
     Route: 065
  2. TRAVATAN [Suspect]
     Active Substance: TRAVOPROST
     Indication: PRODUCT USED FOR UNKNOWN INDICATION
     Dosage: UNK, QD (USE FROM MORE THAN 10 YEARS))
     Route: 065

REACTIONS (4)
  - Gait disturbance [Unknown]
  - Malaise [Unknown]
  - Pneumonia [Fatal]
  - Eye disorder [Unknown]

NARRATIVE: CASE EVENT DATE: 20200314
